FAERS Safety Report 6029764-0 (Version None)
Quarter: 2009Q1

REPORT INFORMATION
  Report Type: 
  Country: None (occurrence: None)
  Receive Date: 20090107
  Receipt Date: 20081230
  Transmission Date: 20090719
  Serious: Yes (Other)
  Sender: FDA-Public Use
  Company Number: ES-ASTRAZENECA-2008AC03483

PATIENT
  Sex: Male

DRUGS (5)
  1. CASODEX [Suspect]
     Indication: PROSTATE CANCER
     Route: 048
     Dates: start: 20080101, end: 20080101
  2. ACETYLSALICYLIC ACID [Concomitant]
  3. ATORVASTATIN CALCIUM [Concomitant]
  4. INDAPAMIDE [Concomitant]
  5. OMEPRAZOLE [Concomitant]

REACTIONS (1)
  - LIVER INJURY [None]
